FAERS Safety Report 6848929-9 (Version None)
Quarter: 2010Q3

REPORT INFORMATION
  Report Type: 
  Country: None (occurrence: None)
  Receive Date: 20100716
  Receipt Date: 20070924
  Transmission Date: 20110219
  Serious: No
  Sender: FDA-Public Use
  Company Number: US-PFIZER INC-2007080885

PATIENT
  Sex: Female
  Weight: 57.7 kg

DRUGS (10)
  1. CHANTIX [Suspect]
     Indication: SMOKING CESSATION THERAPY
     Dates: start: 20070911
  2. LAXATIVES [Suspect]
     Indication: CONSTIPATION
     Dates: start: 20070901
  3. FENTANYL [Concomitant]
  4. LYRICA [Concomitant]
  5. ACTIQ [Concomitant]
  6. ALPRAZOLAM [Concomitant]
  7. CITALOPRAM HYDROBROMIDE [Concomitant]
  8. TRAZODONE HYDROCHLORIDE [Concomitant]
  9. MULTI-VITAMINS [Concomitant]
  10. ESTROGEN NOS [Concomitant]

REACTIONS (3)
  - NAUSEA [None]
  - THERAPEUTIC RESPONSE DELAYED [None]
  - VOMITING [None]
